FAERS Safety Report 15241084 (Version 1)
Quarter: 2018Q3

REPORT INFORMATION
  Report Type: Spontaneous
  Country: US (occurrence: US)
  Receive Date: 20180711
  Receipt Date: 20180711
  Transmission Date: 20181010
  Serious: Yes (Other)
  Sender: FDA-Public Use
  Company Number: None

PATIENT
  Age: 38 Year
  Sex: Female
  Weight: 79.92 kg

DRUGS (2)
  1. VITAMIN D3 [Concomitant]
     Active Substance: CHOLECALCIFEROL
  2. LEGATRIN PM [Suspect]
     Active Substance: ACETAMINOPHEN\DIPHENHYDRAMINE HYDROCHLORIDE
     Indication: PAIN IN EXTREMITY
     Dosage: ?          QUANTITY:1 TABLET(S);?
     Route: 048
     Dates: start: 20140106, end: 20180711

REACTIONS (9)
  - Hyperhidrosis [None]
  - Fatigue [None]
  - Hypopnoea [None]
  - Tremor [None]
  - Suicidal ideation [None]
  - Anxiety [None]
  - Insomnia [None]
  - Restlessness [None]
  - Palpitations [None]

NARRATIVE: CASE EVENT DATE: 20180710
